FAERS Safety Report 9161283 (Version 1)
Quarter: 2013Q1

REPORT INFORMATION
  Report Type: Spontaneous
  Country: US (occurrence: US)
  Receive Date: 20130313
  Receipt Date: 20130313
  Transmission Date: 20140127
  Serious: No
  Sender: FDA-Public Use
  Company Number: US-009507513-1302USA012949

PATIENT
  Sex: Male

DRUGS (3)
  1. AFRIN SPRAY [Suspect]
     Dosage: UNK
     Route: 045
  2. ZOCOR [Suspect]
     Route: 048
  3. ZYRTEC [Concomitant]
     Indication: PRODUCT USED FOR UNKNOWN INDICATION
     Route: 048

REACTIONS (1)
  - Palpitations [Recovered/Resolved]
